FAERS Safety Report 4686282-X (Version None)
Quarter: 2005Q2

REPORT INFORMATION
  Report Type: 
  Country: None (occurrence: None)
  Receive Date: 20050606
  Receipt Date: 20050526
  Transmission Date: 20051028
  Serious: Yes (Life-Threatening, Hospitalization, Other)
  Sender: FDA-Public Use
  Company Number: 2005081127

PATIENT
  Age: 66 Year
  Sex: Female
  Weight: 68.0396 kg

DRUGS (10)
  1. LIPITOR [Suspect]
     Indication: BLOOD CHOLESTEROL INCREASED
     Dosage: 20 MG (20 MG, 1 IN 1 D), ORAL
     Route: 048
     Dates: end: 20050304
  2. HUMIRA [Suspect]
     Indication: ILL-DEFINED DISORDER
     Dosage: (EVERY OTHER WEEK)
     Dates: start: 20040701, end: 20050304
  3. ZETIA [Suspect]
     Indication: ILL-DEFINED DISORDER
     Dosage: 1 IN 1 D
     Dates: start: 20041101, end: 20050304
  4. LEVOTHROID [Concomitant]
  5. XANAX [Concomitant]
  6. VALIUM [Concomitant]
  7. SPIRONOLACTONE [Concomitant]
  8. KLONOPIN [Concomitant]
  9. SINEQUAN [Concomitant]
  10. VICODIN [Concomitant]

REACTIONS (1)
  - OESOPHAGEAL RUPTURE [None]
